FAERS Safety Report 13148484 (Version 1)
Quarter: 2017Q1

REPORT INFORMATION
  Report Type: Spontaneous
  Country: CH (occurrence: SI)
  Receive Date: 20170125
  Receipt Date: 20170125
  Transmission Date: 20170428
  Serious: Yes (Other)
  Sender: FDA-Public Use
  Company Number: CH-LPDUSPRD-20170022

PATIENT
  Age: 30 Year
  Sex: Female

DRUGS (7)
  1. URSOFALK [Concomitant]
     Active Substance: URSODIOL
     Dosage: 250 UNKNOWN
     Route: 065
  2. FERINJECT [Suspect]
     Active Substance: FERRIC CARBOXYMALTOSE
     Dosage: 500 MG IN UNK AMT OF SALINE
     Route: 041
     Dates: start: 201607, end: 201607
  3. PROGRAF [Concomitant]
     Active Substance: TACROLIMUS\TACROLIMUS ANHYDROUS
     Dosage: UNKNOWN
     Route: 065
  4. PLIVIT D3 [Concomitant]
     Active Substance: CHOLECALCIFEROL
     Dosage: UNKNOWN DOSE
     Route: 065
  5. ADVAGRAF [Concomitant]
     Active Substance: TACROLIMUS
     Dosage: 5 UNKNOWN
     Route: 065
  6. MEDROL [Concomitant]
     Active Substance: METHYLPREDNISOLONE
     Dosage: 2 MG
     Route: 065
  7. ACIPAN [Concomitant]
     Active Substance: PANTOPRAZOLE SODIUM
     Dosage: UNKNOWN
     Route: 065

REACTIONS (3)
  - Colitis ulcerative [Unknown]
  - Off label use [Unknown]
  - Infusion site discolouration [Unknown]

NARRATIVE: CASE EVENT DATE: 2016
